FAERS Safety Report 19685247 (Version 3)
Quarter: 2021Q4

REPORT INFORMATION
  Report Type: Report from Study
  Country: US (occurrence: US)
  Receive Date: 20210811
  Receipt Date: 20211108
  Transmission Date: 20220304
  Serious: Yes (Death, Hospitalization, Other)
  Sender: FDA-Public Use
  Company Number: US-GLAXOSMITHKLINE-US2021128997

PATIENT
  Age: 77 Year
  Sex: Female

DRUGS (3)
  1. NIRAPARIB [Suspect]
     Active Substance: NIRAPARIB
     Indication: Fallopian tube cancer
     Dosage: 200 MG, QD
     Route: 048
     Dates: start: 20210609
  2. NIRAPARIB [Suspect]
     Active Substance: NIRAPARIB
     Indication: Ovarian cancer
     Dosage: 200 MG, QD, 10 PM
     Route: 048
  3. NIRAPARIB [Suspect]
     Active Substance: NIRAPARIB
     Dosage: 100 MG, QD
     Dates: start: 20210724

REACTIONS (12)
  - Death [Fatal]
  - Infected fistula [Unknown]
  - Malignant neoplasm progression [Not Recovered/Not Resolved]
  - Metastases to liver [Not Recovered/Not Resolved]
  - Nausea [Recovered/Resolved]
  - Constipation [Recovering/Resolving]
  - Insomnia [Not Recovered/Not Resolved]
  - Decreased appetite [Not Recovered/Not Resolved]
  - Fatigue [Not Recovered/Not Resolved]
  - Decreased activity [Unknown]
  - Platelet count decreased [Not Recovered/Not Resolved]
  - Vomiting [Recovering/Resolving]

NARRATIVE: CASE EVENT DATE: 20210804
